FAERS Safety Report 12358628 (Version 1)
Quarter: 2016Q2

REPORT INFORMATION
  Report Type: Spontaneous
  Country: US (occurrence: US)
  Receive Date: 20160512
  Receipt Date: 20160512
  Transmission Date: 20160815
  Serious: No
  Sender: FDA-Public Use
  Company Number: US-009507513-1604USA010578

PATIENT
  Sex: Female

DRUGS (4)
  1. PRINIVIL [Suspect]
     Active Substance: LISINOPRIL
     Dosage: 5 MG (HALF TABLET)
     Route: 048
  2. NOVOLOG [Concomitant]
     Active Substance: INSULIN ASPART
     Indication: DIABETES MELLITUS
     Dosage: 12 UNITS BEFORE BREAKFAST, 5 UNITS AFTER EVERY MEAL
     Dates: start: 2014
  3. LANTUS [Concomitant]
     Active Substance: INSULIN GLARGINE
     Indication: DIABETES MELLITUS
     Dosage: 20 UNITS BEFORE BED
  4. PRINIVIL [Suspect]
     Active Substance: LISINOPRIL
     Indication: PROPHYLAXIS
     Dosage: 10 MG, UNK
     Route: 048
     Dates: start: 2014

REACTIONS (1)
  - Dizziness [Unknown]
